FAERS Safety Report 6453308-2 (Version None)
Quarter: 2009Q4

REPORT INFORMATION
  Report Type: 
  Country: None (occurrence: None)
  Receive Date: 20091124
  Receipt Date: 20091116
  Transmission Date: 20100525
  Serious: Yes (Hospitalization, Other)
  Sender: FDA-Public Use
  Company Number: US-AMGEN-QUU374909

PATIENT
  Sex: Male

DRUGS (1)
  1. ENBREL [Suspect]
     Indication: PSORIASIS
     Route: 058

REACTIONS (3)
  - JAUNDICE [None]
  - PANCREATIC CARCINOMA [None]
  - VASCULAR OCCLUSION [None]
